FAERS Safety Report 8376834-8 (Version None)
Quarter: 2012Q2

REPORT INFORMATION
  Report Type: 
  Country: None (occurrence: None)
  Receive Date: 20120522
  Receipt Date: 20120510
  Transmission Date: 20120825
  Serious: Yes (Other)
  Sender: FDA-Public Use
  Company Number: DE-FRI-1000030484

PATIENT
  Sex: Male
  Weight: 80 kg

DRUGS (9)
  1. METOPROLOL TARTRATE AND HYDROCHLOROTHIAZIDE [Concomitant]
     Indication: ATRIAL FIBRILLATION
  2. RAMIPRIL [Concomitant]
     Indication: HYPERTENSION
     Dosage: 10 MG
  3. FALITHROM [Concomitant]
     Indication: ANGIOPATHY
     Dosage: DEPENDING ON COAGULATION VALUES
  4. MEMANTINE HCL [Suspect]
     Indication: DEMENTIA ALZHEIMER'S TYPE
     Dosage: 10 MG
     Route: 048
     Dates: start: 20120412, end: 20120414
  5. METOPROLOL TARTRATE AND HYDROCHLOROTHIAZIDE [Concomitant]
     Indication: HYPERTENSION
     Dosage: 95 MG
  6. MEMANTINE HCL [Suspect]
     Dosage: 5 MG
     Route: 048
     Dates: start: 20120405, end: 20120411
  7. HYDROCHLOROTHIAZIDE [Concomitant]
     Indication: HYPERTENSION
     Dosage: 25 MG
  8. AMLODIPINE [Concomitant]
     Indication: ATRIAL FIBRILLATION
     Dosage: 10 MG
  9. INSUMAN COMB [Concomitant]
     Indication: DIABETES MELLITUS
     Dosage: DEPENDING ON BLOOD SUGAR LEVELS

REACTIONS (1)
  - CARDIAC DISORDER [None]
